FAERS Safety Report 23358027 (Version 1)
Quarter: 2024Q1

REPORT INFORMATION
  Report Type: Spontaneous
  Country: US (occurrence: None)
  Receive Date: 20240101
  Receipt Date: 20240101
  Transmission Date: 20240410
  Serious: Yes (Life-Threatening, Disabling, Other)
  Sender: FDA-Public Use
  Company Number: None

PATIENT
  Age: 33 Year
  Sex: Male
  Weight: 90 kg

DRUGS (2)
  1. FINASTERIDE [Suspect]
     Active Substance: FINASTERIDE
     Dosage: 1 MG DAILY ORAL?
     Route: 048
     Dates: start: 20230215, end: 20230315
  2. propecia finestaride HIMS [Concomitant]
     Dates: start: 20230215, end: 20230315

REACTIONS (7)
  - Alopecia [None]
  - Pain [None]
  - Muscle atrophy [None]
  - Irritable bowel syndrome [None]
  - Genital hypoaesthesia [None]
  - Arthralgia [None]
  - Bone pain [None]

NARRATIVE: CASE EVENT DATE: 20230315
